FAERS Safety Report 9531081 (Version 1)
Quarter: 2013Q3

REPORT INFORMATION
  Report Type: Spontaneous
  Country: US (occurrence: US)
  Receive Date: 20130918
  Receipt Date: 20130918
  Transmission Date: 20140515
  Serious: Yes (Other)
  Sender: FDA-Public Use
  Company Number: US-BAYER-2013-111178

PATIENT
  Age: 47 Year
  Sex: Female

DRUGS (8)
  1. YAZ [Suspect]
     Indication: CONTRACEPTION
  2. YAZ [Suspect]
     Indication: ENDOMETRIOSIS
  3. GIANVI [Suspect]
  4. FLUOXETINE [Concomitant]
     Dosage: UNK
     Dates: start: 20120622
  5. FLUOXETINE [Concomitant]
     Dosage: 20 MG, UNK
  6. CIPRO [Concomitant]
  7. CELEBREX [Concomitant]
  8. ENOXAPARIN [Concomitant]

REACTIONS (1)
  - Deep vein thrombosis [None]
